FAERS Safety Report 21039835 (Version 2)
Quarter: 2022Q3

REPORT INFORMATION
  Report Type: Spontaneous
  Country: US (occurrence: US)
  Receive Date: 20220704
  Receipt Date: 20220815
  Transmission Date: 20221027
  Serious: Yes (Other)
  Sender: FDA-Public Use
  Company Number: US-PFIZER INC-202200913050

PATIENT
  Age: 67 Year
  Sex: Female
  Weight: 68.04 kg

DRUGS (1)
  1. PAXLOVID [Suspect]
     Active Substance: NIRMATRELVIR\RITONAVIR
     Indication: COVID-19 treatment
     Dosage: [PF-07321332 300 MG]/[RITONAVIR 100 MG]; 2X/DAY
     Dates: start: 20220627

REACTIONS (7)
  - Haemorrhage urinary tract [Not Recovered/Not Resolved]
  - Dysgeusia [Not Recovered/Not Resolved]
  - Thirst [Not Recovered/Not Resolved]
  - Pollakiuria [Not Recovered/Not Resolved]
  - Haematuria [Not Recovered/Not Resolved]
  - Chromaturia [Not Recovered/Not Resolved]
  - Urethritis noninfective [Not Recovered/Not Resolved]

NARRATIVE: CASE EVENT DATE: 20220627
